FAERS Safety Report 5408213-7 (Version None)
Quarter: 2007Q3

REPORT INFORMATION
  Report Type: 
  Country: None (occurrence: None)
  Receive Date: 20070806
  Receipt Date: 20070806
  Transmission Date: 20080115
  Serious: Yes (Hospitalization)
  Sender: FDA-Public Use
  Company Number: None

PATIENT
  Sex: Male
  Weight: 63.1 kg

DRUGS (4)
  1. MERCAPTOPURINE [Suspect]
     Dosage: 1300 MG
  2. DEXAMETHASONE 0.5MG TAB [Suspect]
     Dosage: 100 MG
  3. METHOTREXATE [Suspect]
     Dosage: 215 MG
  4. VINCRISTINE SULFATE [Suspect]
     Dosage: 4 MG

REACTIONS (10)
  - ATRIOVENTRICULAR BLOCK [None]
  - BLOOD CULTURE POSITIVE [None]
  - CARDIAC ARREST [None]
  - HYPOGAMMAGLOBULINAEMIA [None]
  - NEUTROPENIA [None]
  - NOCARDIOSIS [None]
  - PNEUMOCYSTIS JIROVECI INFECTION [None]
  - PNEUMONITIS [None]
  - PNEUMOTHORAX [None]
  - RESPIRATORY FAILURE [None]
